FAERS Safety Report 11340716 (Version 2)
Quarter: 2016Q1

REPORT INFORMATION
  Report Type: Report from Study
  Country: PL (occurrence: PL)
  Receive Date: 20150805
  Receipt Date: 20160311
  Transmission Date: 20160525
  Serious: Yes (Hospitalization, Other)
  Sender: FDA-Public Use
  Company Number: PL-BAYER-2015-391417

PATIENT
  Age: 34 Year
  Sex: Male

DRUGS (1)
  1. BETAFERON [Suspect]
     Active Substance: INTERFERON BETA-1B
     Indication: MULTIPLE SCLEROSIS
     Dosage: 250, QOD
     Route: 058
     Dates: start: 200906

REACTIONS (4)
  - Suicidal ideation [None]
  - Lower limb fracture [None]
  - Hallucinations, mixed [None]
  - Aggression [None]

NARRATIVE: CASE EVENT DATE: 20150720
